FAERS Safety Report 4768134-X (Version None)
Quarter: 2005Q3

REPORT INFORMATION
  Report Type: 
  Country: None (occurrence: None)
  Receive Date: 20050912
  Receipt Date: 20050912
  Transmission Date: 20060218
  Serious: Yes (Hospitalization, Other)
  Sender: FDA-Public Use
  Company Number: None

PATIENT
  Age: 38 Year
  Sex: Female
  Weight: 85.2762 kg

DRUGS (1)
  1. CYTOTEC [Suspect]
     Dosage: .25MG EVERY 4 HOURS CERVICAL FORNIX INTRA-UTER
     Route: 015
     Dates: start: 20000926, end: 20000927

REACTIONS (7)
  - ABNORMAL LABOUR [None]
  - COLD SWEAT [None]
  - DRUG EXPOSURE DURING PREGNANCY [None]
  - HYSTERECTOMY [None]
  - OFF LABEL USE [None]
  - TREMOR [None]
  - UTERINE PROLAPSE [None]
